FAERS Safety Report 7273616-5 (Version None)
Quarter: 2011Q1

REPORT INFORMATION
  Report Type: 
  Country: None (occurrence: None)
  Receive Date: 20110203
  Receipt Date: 20110126
  Transmission Date: 20110831
  Serious: Yes (Hospitalization)
  Sender: FDA-Public Use
  Company Number: Z0007641A

PATIENT
  Sex: Male
  Weight: 73.5 kg

DRUGS (3)
  1. OFATUMUMAB [Suspect]
     Route: 042
     Dates: start: 20100921
  2. FLUDARA [Suspect]
     Route: 042
     Dates: start: 20100921
  3. CYCLOPHOSPHAMIDE [Suspect]
     Route: 042
     Dates: start: 20100921

REACTIONS (1)
  - FEBRILE NEUTROPENIA [None]
